FAERS Safety Report 20362926 (Version 13)
Quarter: 2022Q3

REPORT INFORMATION
  Report Type: Report from Study
  Country: CA (occurrence: CA)
  Receive Date: 20220121
  Receipt Date: 20220715
  Transmission Date: 20221027
  Serious: Yes (Hospitalization)
  Sender: FDA-Public Use
  Company Number: CA-JNJFOC-20220130442

PATIENT
  Age: 49 Year
  Sex: Female
  Weight: 81.720 kg

DRUGS (2)
  1. SIMPONI [Suspect]
     Active Substance: GOLIMUMAB
     Indication: Ankylosing spondylitis
     Route: 058
     Dates: start: 20180809
  2. SIMPONI [Suspect]
     Active Substance: GOLIMUMAB
     Route: 058

REACTIONS (7)
  - Kidney infection [Recovering/Resolving]
  - Fungal infection [Not Recovered/Not Resolved]
  - COVID-19 pneumonia [Recovering/Resolving]
  - Paraesthesia [Unknown]
  - Pain [Unknown]
  - Chemical burn [Not Recovered/Not Resolved]
  - Wound secretion [Not Recovered/Not Resolved]

NARRATIVE: CASE EVENT DATE: 20220109
